FAERS Safety Report 22996771 (Version 2)
Quarter: 2024Q2

REPORT INFORMATION
  Report Type: Other
  Country: JP (occurrence: JP)
  Receive Date: 20230928
  Receipt Date: 20240419
  Transmission Date: 20240715
  Serious: Yes (Other)
  Sender: FDA-Public Use
  Company Number: JP-CHUGAI-2023034092

PATIENT
  Age: 9 Year
  Sex: Male

DRUGS (7)
  1. CELLCEPT [Suspect]
     Active Substance: MYCOPHENOLATE MOFETIL
     Indication: Prophylaxis against graft versus host disease
     Dosage: UNK
     Route: 065
  2. CYCLOPHOSPHAMIDE [Suspect]
     Active Substance: CYCLOPHOSPHAMIDE
     Indication: Prophylaxis against graft versus host disease
     Dosage: UNK
     Route: 065
  3. TACROLIMUS [Suspect]
     Active Substance: TACROLIMUS
     Indication: Prophylaxis against graft versus host disease
     Dosage: UNK
     Route: 065
  4. FLUDARABINE PHOSPHATE [Concomitant]
     Active Substance: FLUDARABINE PHOSPHATE
     Dosage: 180 MILLIGRAM/SQ. METER
  5. BUSULFAN [Concomitant]
     Active Substance: BUSULFAN
     Dosage: TARGET-AUC 65MG/DL X H
  6. EQUINE THYMOCYTE IMMUNE GLOBULIN [Concomitant]
     Active Substance: EQUINE THYMOCYTE IMMUNE GLOBULIN
     Dosage: 2.5 MILLIGRAM/KILOGRAM
  7. AMINOSALICYLATE CALCIUM [Concomitant]
     Active Substance: AMINOSALICYLATE CALCIUM
     Indication: Crohn^s disease
     Dosage: UNK

REACTIONS (2)
  - Cystitis haemorrhagic [Recovering/Resolving]
  - BK virus infection [Recovering/Resolving]
